FAERS Safety Report 14194456 (Version 1)
Quarter: 2017Q4

REPORT INFORMATION
  Report Type: Spontaneous
  Country: US (occurrence: US)
  Receive Date: 20171115
  Receipt Date: 20171115
  Transmission Date: 20180321
  Serious: Yes (Other)
  Sender: FDA-Public Use
  Company Number: None

PATIENT
  Age: 28 Year
  Sex: Female

DRUGS (1)
  1. ZUBSOLV [Suspect]
     Active Substance: BUPRENORPHINE HYDROCHLORIDE\NALOXONE HYDROCHLORIDE
     Dosage: ?          QUANTITY:1 TABLET(S);?
     Route: 048
     Dates: start: 20171027

REACTIONS (9)
  - Asthenia [None]
  - Anxiety [None]
  - Cold sweat [None]
  - Tremor [None]
  - Vomiting [None]
  - Hyperhidrosis [None]
  - Balance disorder [None]
  - Confusional state [None]
  - Fatigue [None]

NARRATIVE: CASE EVENT DATE: 20171103
